FAERS Safety Report 8359654-X (Version None)
Quarter: 2012Q2

REPORT INFORMATION
  Report Type: 
  Country: None (occurrence: None)
  Receive Date: 20120514
  Receipt Date: 20120514
  Transmission Date: 20120825
  Serious: Yes (Life-Threatening)
  Sender: FDA-Public Use
  Company Number: None

PATIENT
  Age: 63 Year
  Sex: Male
  Weight: 155.8 kg

DRUGS (1)
  1. METHADONE HYDROCHLORIDE [Suspect]
     Indication: PAIN
     Dosage: 10 MG BID PO
     Route: 048
     Dates: start: 20040503, end: 20110924

REACTIONS (1)
  - ELECTROCARDIOGRAM QT PROLONGED [None]
